FAERS Safety Report 20068694 (Version 1)
Quarter: 2021Q4

REPORT INFORMATION
  Report Type: Spontaneous
  Country: US (occurrence: US)
  Receive Date: 20211115
  Receipt Date: 20211115
  Transmission Date: 20220303
  Serious: No
  Sender: FDA-Public Use
  Company Number: US-BEH-2021138033

PATIENT
  Sex: Male

DRUGS (9)
  1. HIZENTRA [Suspect]
     Active Substance: HUMAN IMMUNOGLOBULIN G
     Indication: Immunodeficiency common variable
     Dosage: 20 GRAM, QW
     Route: 058
  2. BACLOFEN [Concomitant]
     Active Substance: BACLOFEN
  3. COLACE [Concomitant]
     Active Substance: DOCUSATE SODIUM
  4. GALCANEZUMAB [Concomitant]
     Active Substance: GALCANEZUMAB
  5. MS CONTIN [Concomitant]
     Active Substance: MORPHINE SULFATE
  6. VITAMINS [Concomitant]
     Active Substance: VITAMINS
  7. OXYCODONE [Concomitant]
     Active Substance: OXYCODONE
  8. TIZANIDINE HYDROCHLORIDE [Concomitant]
     Active Substance: TIZANIDINE HYDROCHLORIDE
  9. UBROGEPANT [Concomitant]
     Active Substance: UBROGEPANT

REACTIONS (3)
  - Injection site erythema [Unknown]
  - No adverse event [Unknown]
  - Product supply issue [Unknown]
